FAERS Safety Report 16329842 (Version 9)
Quarter: 2019Q4

REPORT INFORMATION
  Report Type: Report from Study
  Country: FR (occurrence: FR)
  Receive Date: 20190520
  Receipt Date: 20191219
  Transmission Date: 20200122
  Serious: Yes (Hospitalization)
  Sender: FDA-Public Use
  Company Number: FR-ROCHE-2320281

PATIENT
  Age: 60 Year
  Sex: Male

DRUGS (23)
  1. ELISOR [Concomitant]
     Active Substance: PRAVASTATIN SODIUM
     Indication: HYPERCHOLESTEROLAEMIA
     Route: 048
  2. BACTRIM [Concomitant]
     Active Substance: SULFAMETHOXAZOLE\TRIMETHOPRIM
     Indication: URINARY TRACT INFECTION
     Route: 048
     Dates: start: 20190411, end: 20190425
  3. DOLIPRANE [Concomitant]
     Active Substance: ACETAMINOPHEN
     Indication: TUMOUR PAIN
     Route: 048
  4. PRIVALONE [Concomitant]
     Indication: RASH MACULO-PAPULAR
     Route: 048
     Dates: start: 20190420
  5. CEFIXIME. [Concomitant]
     Active Substance: CEFIXIME
     Route: 048
     Dates: end: 20190516
  6. AERIUS (DESLORATADINE) [Concomitant]
     Active Substance: DESLORATADINE
     Indication: PROPHYLAXIS
     Dosage: 1 UNIT
     Route: 048
     Dates: start: 20190617
  7. MOPRAL [OMEPRAZOLE] [Concomitant]
     Active Substance: OMEPRAZOLE
     Indication: PROPHYLAXIS
     Route: 048
     Dates: start: 20190617
  8. PRIMPERAN [Concomitant]
     Active Substance: METOCLOPRAMIDE HYDROCHLORIDE
     Indication: PROPHYLAXIS
     Route: 048
     Dates: start: 20190617
  9. ESOMEPRAZOLE. [Concomitant]
     Active Substance: ESOMEPRAZOLE MAGNESIUM
     Indication: RASH MACULO-PAPULAR
     Route: 048
     Dates: start: 20190425, end: 20190516
  10. TIORFAN [Concomitant]
     Active Substance: RACECADOTRIL
     Dosage: 1 UNIT
     Route: 048
  11. TIORFAN [Concomitant]
     Active Substance: RACECADOTRIL
     Indication: PROPHYLAXIS
     Dosage: DOSE: 1
     Route: 048
     Dates: start: 20190423
  12. AVODART [Concomitant]
     Active Substance: DUTASTERIDE
     Indication: BENIGN PROSTATIC HYPERPLASIA
     Route: 048
  13. BETAMETHASONE. [Concomitant]
     Active Substance: BETAMETHASONE
     Route: 061
     Dates: start: 20190617
  14. PRAVASTATINE [PRAVASTATIN] [Concomitant]
     Active Substance: PRAVASTATIN
     Indication: RASH MACULO-PAPULAR
     Route: 048
     Dates: start: 20190425
  15. COBIMETINIB. [Suspect]
     Active Substance: COBIMETINIB
     Indication: METASTASES TO CENTRAL NERVOUS SYSTEM
     Dosage: (THREE TABLETS OF 20 MG EACH) ON DAYS 1-21 OF EACH 28-DAY CYCLE?DATE OF MOST RECENT DOSE PRIOR TO EV
     Route: 048
     Dates: start: 20190411
  16. ATEZOLIZUMAB. [Suspect]
     Active Substance: ATEZOLIZUMAB
     Indication: METASTASES TO CENTRAL NERVOUS SYSTEM
     Dosage: DAYS 1 AND 15 OF EACH 28-DAY CYCLE?DATE OF MOST RECENT DOSE PRIOR TO EVENT ONSET: 11/APR/2019 AT 12
     Route: 042
     Dates: start: 20190411
  17. AVLOCARDYL [PROPRANOLOL HYDROCHLORIDE] [Concomitant]
     Active Substance: PROPRANOLOL HYDROCHLORIDE
     Indication: CLUSTER HEADACHE
     Route: 048
     Dates: end: 20190520
  18. FAZOL [ISOCONAZOLE NITRATE] [Concomitant]
  19. CORTANCYL [Concomitant]
     Active Substance: PREDNISONE
     Indication: HEADACHE
     Route: 048
     Dates: start: 20190617
  20. SMECTA [Concomitant]
     Active Substance: MONTMORILLONITE
     Indication: PROPHYLAXIS
     Dosage: 1 UNIT
     Route: 048
     Dates: start: 20190617
  21. TRIFLUCAN [Concomitant]
     Active Substance: FLUCONAZOLE
     Indication: RASH MACULO-PAPULAR
     Route: 048
     Dates: start: 20190425, end: 20190509
  22. UROREC [Concomitant]
     Active Substance: SILODOSIN
     Indication: URETHRAL STENOSIS
     Route: 048
  23. NACL [Concomitant]
     Active Substance: SODIUM CHLORIDE
     Dosage: INTRAVENOUS REHYDRATION
     Route: 042
     Dates: start: 20190425

REACTIONS (3)
  - Myocarditis [Recovered/Resolved]
  - Serous retinal detachment [Unknown]
  - Ejection fraction decreased [Recovered/Resolved]

NARRATIVE: CASE EVENT DATE: 20190507
